FAERS Safety Report 24851112 (Version 1)
Quarter: 2025Q1

REPORT INFORMATION
  Report Type: Report from Study
  Country: ES (occurrence: ES)
  Receive Date: 20250116
  Receipt Date: 20250116
  Transmission Date: 20250409
  Serious: Yes (Death, Life-Threatening)
  Sender: MYLAN
  Company Number: None

PATIENT
  Age: 78 Year
  Sex: Female

DRUGS (1)
  1. FENTANYL [Suspect]
     Active Substance: FENTANYL
     Indication: Ovarian epithelial cancer
     Dosage: 25 MICROGRAM, Q3D (25MCG/72H)
     Route: 062
     Dates: start: 202306

REACTIONS (1)
  - Intestinal pseudo-obstruction [Fatal]
